FAERS Safety Report 6314852-1 (Version None)
Quarter: 2009Q3

REPORT INFORMATION
  Report Type: 
  Country: None (occurrence: None)
  Receive Date: 20090819
  Receipt Date: 20090807
  Transmission Date: 20100115
  Serious: Yes (Hospitalization)
  Sender: FDA-Public Use
  Company Number: GB-PFIZER INC-2009231883

PATIENT
  Age: 75 Year

DRUGS (4)
  1. SOMATROPIN [Suspect]
     Indication: CUSHING'S SYNDROME
     Dosage: 0.2 MG, 1X/DAY
     Dates: start: 19990401
  2. LEVOTHYROXINE [Concomitant]
     Dosage: 75 UG, 1X/DAY
     Route: 048
  3. DIGOXIN [Concomitant]
     Dosage: 125 UG, 1X/DAY
     Route: 048
  4. SPIRONOLACTONE [Concomitant]
     Dosage: 25 MG, 1X/DAY
     Route: 048
     Dates: start: 20050824

REACTIONS (1)
  - PELVIC MASS [None]
